FAERS Safety Report 5315522-9 (Version None)
Quarter: 2007Q2

REPORT INFORMATION
  Report Type: 
  Country: None (occurrence: None)
  Receive Date: 20070503
  Receipt Date: 20070425
  Transmission Date: 20071010
  Serious: Yes (Other)
  Sender: FDA-Public Use
  Company Number: GB-AVENTIS-200713751GDDC

PATIENT
  Age: 71 Year
  Sex: Female

DRUGS (10)
  1. METRONIDAZOLE [Suspect]
  2. WARFARIN [Suspect]
     Indication: MITRAL VALVE DISEASE
     Dosage: DOSE: UNK
  3. ALLOPURINOL [Concomitant]
  4. AMILORIDE HYDROCHLORIDE [Concomitant]
     Dosage: DOSE: 2 NOS
  5. ATORVASTATIN CALCIUM [Concomitant]
  6. CEFUROXIME [Concomitant]
  7. FUROSEMIDE [Concomitant]
  8. LISINOPRIL [Concomitant]
  9. SALBUTAMOL [Concomitant]
     Dosage: DOSE: UNK
  10. SERETIDE [Concomitant]
     Dosage: DOSE: 2 DOSAGE FORMS

REACTIONS (2)
  - DRUG INTERACTION [None]
  - INTERNATIONAL NORMALISED RATIO INCREASED [None]
